FAERS Safety Report 16818012 (Version 1)
Quarter: 2019Q3

REPORT INFORMATION
  Report Type: Spontaneous
  Country: DE (occurrence: DE)
  Receive Date: 20190917
  Receipt Date: 20190917
  Transmission Date: 20191005
  Serious: Yes (Hospitalization)
  Sender: FDA-Public Use
  Company Number: DE-MYLANLABS-2019M1087354

PATIENT
  Age: 38 Year
  Sex: Male

DRUGS (12)
  1. CLOZAPIN RATIOPHARM [Interacting]
     Active Substance: CLOZAPINE
     Indication: SCHIZOPHRENIA
     Dosage: 500 MG, QD
     Route: 065
  2. FLUVOXAMIN                         /00615201/ [Concomitant]
     Active Substance: FLUVOXAMINE
     Indication: PRODUCT USED FOR UNKNOWN INDICATION
     Dosage: 50 MG, UNK
     Route: 065
  3. FLUVOXAMIN                         /00615201/ [Concomitant]
     Active Substance: FLUVOXAMINE
     Dosage: 50 MG, UNK
     Route: 065
  4. ORFIRIL [Concomitant]
     Active Substance: VALPROATE SODIUM
     Dosage: 900 UNK
  5. HALDOL [Interacting]
     Active Substance: HALOPERIDOL
     Indication: PRODUCT USED FOR UNKNOWN INDICATION
     Dosage: UNK
     Route: 065
  6. LEPONEX [Suspect]
     Active Substance: CLOZAPINE
     Indication: SCHIZOPHRENIA
     Dosage: 450 MG, UNK
     Route: 065
  7. LEPONEX [Interacting]
     Active Substance: CLOZAPINE
     Dosage: 50 MG, UNK
     Route: 065
  8. NEBIVOLOL. [Concomitant]
     Active Substance: NEBIVOLOL
     Indication: PRODUCT USED FOR UNKNOWN INDICATION
     Dosage: 5 MG, UNK
     Route: 065
  9. FLUVOXAMIN                         /00615201/ [Concomitant]
     Active Substance: FLUVOXAMINE
     Dosage: UNK
     Route: 065
  10. HALDOL DECANOATE [Interacting]
     Active Substance: HALOPERIDOL DECANOATE
     Indication: PRODUCT USED FOR UNKNOWN INDICATION
     Dosage: 150 MG, UNK
     Route: 065
     Dates: start: 2017
  11. ORFIRIL [Concomitant]
     Active Substance: VALPROATE SODIUM
     Indication: EPILEPSY
     Dosage: 900 MG, UNK
     Route: 065
  12. ORFIRIL [Concomitant]
     Active Substance: VALPROATE SODIUM
     Dosage: UNK MG, UNK
     Route: 065

REACTIONS (6)
  - Emotional poverty [Unknown]
  - Muscle rigidity [Unknown]
  - Rathke^s cleft cyst [Unknown]
  - Deformity [Unknown]
  - Drug interaction [Unknown]
  - Urinary incontinence [Unknown]

NARRATIVE: CASE EVENT DATE: 2017
